FAERS Safety Report 11912815 (Version 1)
Quarter: 2016Q1

REPORT INFORMATION
  Report Type: Spontaneous
  Country: RU (occurrence: RU)
  Receive Date: 20160113
  Receipt Date: 20160113
  Transmission Date: 20160526
  Serious: Yes (Death, Other)
  Sender: FDA-Public Use
  Company Number: RU-BAYER-2016-003489

PATIENT
  Age: 35 Year
  Sex: Female

DRUGS (2)
  1. CEFEPIME [Concomitant]
     Active Substance: CEFEPIME HYDROCHLORIDE
     Dosage: UNK
     Dates: start: 20130307, end: 20130401
  2. CIPROFLOXACIN. [Suspect]
     Active Substance: CIPROFLOXACIN
     Indication: PSEUDOMEMBRANOUS COLITIS
     Dosage: UNK
     Dates: start: 20130307, end: 20130401

REACTIONS (23)
  - Oedema [None]
  - Gastrointestinal oedema [None]
  - Polyneuropathy [None]
  - Cachexia [None]
  - Ascites [None]
  - Gastrointestinal injury [None]
  - Quadriparesis [None]
  - Epilepsy [None]
  - Pyrexia [None]
  - Pseudomembranous colitis [Fatal]
  - Drug ineffective [None]
  - Abdominal pain upper [None]
  - Diapedesis [None]
  - Muscle contracture [None]
  - Toxic shock syndrome [Fatal]
  - Encephalitis [None]
  - Hydrothorax [None]
  - Brain oedema [None]
  - Extrapyramidal disorder [None]
  - Hypovolaemic shock [Fatal]
  - Nephrotic syndrome [None]
  - Multiple organ dysfunction syndrome [None]
  - Dystonia [None]
